FAERS Safety Report 7623345-0 (Version None)
Quarter: 2011Q3

REPORT INFORMATION
  Report Type: 
  Country: None (occurrence: None)
  Receive Date: 20110720
  Receipt Date: 20110713
  Transmission Date: 20111222
  Serious: Yes (Life-Threatening, Hospitalization, Disabling)
  Sender: FDA-Public Use
  Company Number: US-ROCHE-783059

PATIENT
  Age: 67 Year
  Sex: Female
  Weight: 76.8 kg

DRUGS (3)
  1. BEVACIZUMAB [Suspect]
     Dosage: 15 MG/KG IV OVER 30-90 MIN ON DAY 1, BEGINNING WITH CYCLE 2
     Route: 042
     Dates: start: 20100721
  2. CARBOPLATIN [Suspect]
     Dosage: AUC 6 IV ON DAY 1
     Route: 042
     Dates: start: 20100721
  3. PACLITAXEL [Suspect]
     Dosage: 80 MG/M2 IV OVER 1 HR ON DAYS 1, 8 + 15
     Route: 042
     Dates: start: 20100721

REACTIONS (14)
  - HAEMORRHOIDS [None]
  - GRANULOCYTE COUNT [None]
  - HYPONATRAEMIA [None]
  - FATIGUE [None]
  - NEUTROPENIA [None]
  - ABDOMINAL PAIN [None]
  - DEHYDRATION [None]
  - ENTEROCOLITIS INFECTIOUS [None]
  - URINARY TRACT INFECTION [None]
  - PERIPHERAL MOTOR NEUROPATHY [None]
  - NEURALGIA [None]
  - FEBRILE NEUTROPENIA [None]
  - NEUTROPHIL COUNT [None]
  - PERIPHERAL SENSORY NEUROPATHY [None]
